FAERS Safety Report 4271996-6 (Version None)
Quarter: 2004Q1

REPORT INFORMATION
  Report Type: 
  Country: None (occurrence: None)
  Receive Date: 20040113
  Receipt Date: 20040106
  Transmission Date: 20041129
  Serious: Yes (Hospitalization)
  Sender: FDA-Public Use
  Company Number: 2003125132

PATIENT
  Age: 19 Year
  Sex: Female
  Weight: 56 kg

DRUGS (9)
  1. VFEND [Suspect]
     Indication: SYSTEMIC CANDIDA
     Dosage: 400 MG (BID), ORAL
     Route: 048
     Dates: start: 20030417, end: 20030428
  2. MERCAPOTOPURINE (MERCAPTOPURINE) [Concomitant]
  3. ETOPOSIDE [Concomitant]
  4. CYTARABINE [Concomitant]
  5. BACTRIM [Concomitant]
  6. METHYLPREDNISOLONE ACETATE (MEETHYLPREDNISOLONE ACETATE) [Concomitant]
  7. CYTARABINE [Concomitant]
  8. METHOTREXATE [Concomitant]
  9. ALL OTHER THERAPEUTIC PRODUCTS [Concomitant]

REACTIONS (1)
  - DELIRIUM [None]
